FAERS Safety Report 21346080 (Version 1)
Quarter: 2022Q3

REPORT INFORMATION
  Report Type: Spontaneous
  Country: FR (occurrence: FR)
  Receive Date: 20220917
  Receipt Date: 20220917
  Transmission Date: 20221026
  Serious: Yes (Hospitalization, Other)
  Sender: FDA-Public Use
  Company Number: FR-AFSSAPS-AN20221966

PATIENT
  Age: 44 Year
  Sex: Female
  Weight: 99 kg

DRUGS (3)
  1. ARIPIPRAZOLE [Suspect]
     Active Substance: ARIPIPRAZOLE
     Indication: Bipolar disorder
     Dosage: 15 MILLIGRAM, ONCE A DAY
     Route: 048
     Dates: end: 20220803
  2. LAMOTRIGINE [Suspect]
     Active Substance: LAMOTRIGINE
     Indication: Bipolar disorder
     Dosage: 200 MILLIGRAM, ONCE A DAY
     Route: 048
     Dates: start: 20220531, end: 20220803
  3. LEVOTHYROXINE [Concomitant]
     Active Substance: LEVOTHYROXINE
     Indication: Hypothyroidism
     Dosage: 1 DOSAGE FORM, ONCE A DAY
     Route: 048

REACTIONS (3)
  - Hepatitis cholestatic [Recovered/Resolved]
  - Cholangitis [Recovering/Resolving]
  - Rash macular [Recovered/Resolved]

NARRATIVE: CASE EVENT DATE: 20220801
